FAERS Safety Report 15994142 (Version 1)
Quarter: 2019Q1

REPORT INFORMATION
  Report Type: Spontaneous
  Country: BR (occurrence: BR)
  Receive Date: 20190222
  Receipt Date: 20190222
  Transmission Date: 20190418
  Serious: Yes (Death, Other)
  Sender: FDA-Public Use
  Company Number: BR-AMGEN-BRASP2019025720

PATIENT

DRUGS (1)
  1. REPATHA [Suspect]
     Active Substance: EVOLOCUMAB
     Indication: PRODUCT USED FOR UNKNOWN INDICATION
     Dosage: UNK
     Route: 065

REACTIONS (7)
  - Apallic syndrome [Unknown]
  - Feeling abnormal [Unknown]
  - Death [Fatal]
  - Headache [Unknown]
  - Weight decreased [Unknown]
  - Skin discolouration [Unknown]
  - Hypophagia [Unknown]
